FAERS Safety Report 18649117 (Version 1)
Quarter: 2020Q4

REPORT INFORMATION
  Report Type: Spontaneous
  Country: FR (occurrence: FR)
  Receive Date: 20201222
  Receipt Date: 20201222
  Transmission Date: 20210114
  Serious: Yes (Hospitalization)
  Sender: FDA-Public Use
  Company Number: FR-MYLANLABS-2020M1103391

PATIENT
  Age: 16 Month
  Sex: Male
  Weight: 12 kg

DRUGS (1)
  1. TRAMADOL MYLAN 50 MG, G?LULE [Suspect]
     Active Substance: TRAMADOL
     Indication: PRODUCT USED FOR UNKNOWN INDICATION
     Dosage: 50 MILLIGRAM, TOTAL
     Route: 048
     Dates: start: 20200314, end: 20200314

REACTIONS (4)
  - Somnolence [Recovered/Resolved]
  - Vertigo [Recovered/Resolved]
  - Accidental exposure to product [Unknown]
  - Balance disorder [Recovered/Resolved]

NARRATIVE: CASE EVENT DATE: 20200314
